FAERS Safety Report 9495754 (Version 1)
Quarter: 2013Q3

REPORT INFORMATION
  Report Type: Spontaneous
  Country: US (occurrence: US)
  Receive Date: 20130903
  Receipt Date: 20130903
  Transmission Date: 20140515
  Serious: Yes (Hospitalization, Other)
  Sender: FDA-Public Use
  Company Number: US-ABBOTT-13P-163-1140337-00

PATIENT
  Sex: 0

DRUGS (3)
  1. DEPAKOTE [Suspect]
     Indication: CONVULSION
  2. KEPPRA [Concomitant]
     Indication: CONVULSION
  3. LEVETIRACETAM [Concomitant]
     Indication: CONVULSION

REACTIONS (3)
  - Concussion [Unknown]
  - Convulsion [Unknown]
  - Fall [Unknown]
